FAERS Safety Report 9675037 (Version 1)
Quarter: 2013Q4

REPORT INFORMATION
  Report Type: Spontaneous
  Country: US (occurrence: None)
  Receive Date: 20131106
  Receipt Date: 20131106
  Transmission Date: 20140711
  Serious: Yes (Hospitalization)
  Sender: FDA-Public Use
  Company Number: None

PATIENT
  Age: 38 Year
  Sex: Female
  Weight: 133 kg

DRUGS (19)
  1. LISINOPRIL/HCTZ [Suspect]
     Indication: HYPERTENSION
     Route: 048
  2. SINGULAIR [Concomitant]
  3. ATRIPLA [Concomitant]
  4. PRILOSEC [Concomitant]
  5. SYMBICORT INHALER INHALATION [Concomitant]
  6. PRO-AIR HFA INHALER INHALATION [Concomitant]
  7. BENADRYL [Concomitant]
  8. SOLUMEDROL [Concomitant]
  9. DIPRIVAN [Concomitant]
  10. HEPARIN SQ [Concomitant]
  11. PEPCID [Concomitant]
  12. FENTANYL [Concomitant]
  13. TYLENOL SUPPOSITORIES [Concomitant]
  14. DUONEB [Concomitant]
  15. ATIVAN [Concomitant]
  16. JEVITY [Concomitant]
  17. LACTULOSE [Concomitant]
  18. BOLUS [Concomitant]
  19. NS IVF [Concomitant]

REACTIONS (10)
  - Pneumonia klebsiella [None]
  - Escherichia urinary tract infection [None]
  - Swollen tongue [None]
  - Anxiety [None]
  - Nausea [None]
  - Dysphagia [None]
  - Drooling [None]
  - Angioedema [None]
  - Respiratory failure [None]
  - Pneumonia streptococcal [None]
